FAERS Safety Report 20895928 (Version 1)
Quarter: 2022Q2

REPORT INFORMATION
  Report Type: Spontaneous
  Country: SE (occurrence: None)
  Receive Date: 20220531
  Receipt Date: 20220531
  Transmission Date: 20220720
  Serious: Yes (Hospitalization)
  Sender: FDA-Public Use
  Company Number: 2022A197937

PATIENT
  Age: 82 Year
  Sex: Female

DRUGS (1)
  1. IRESSA [Suspect]
     Active Substance: GEFITINIB
     Indication: Lung neoplasm malignant
     Route: 048
     Dates: start: 202107

REACTIONS (4)
  - Skin wound [Recovered/Resolved]
  - Wound infection staphylococcal [Recovered/Resolved]
  - Streptococcal infection [Recovered/Resolved]
  - Feeling abnormal [Unknown]
